FAERS Safety Report 9998081 (Version 1)
Quarter: 2014Q1

REPORT INFORMATION
  Report Type: Spontaneous
  Country: US (occurrence: None)
  Receive Date: 20140221
  Receipt Date: 20140221
  Transmission Date: 20141002
  Serious: Yes (Other)
  Sender: FDA-Public Use
  Company Number: 1000051893

PATIENT
  Age: 67 Year
  Sex: Male

DRUGS (8)
  1. TUDORZA PRESSAIR (ACLIDINIUM BROMIDE) (400 MICROGRAM, POWDER) [Suspect]
     Indication: CHRONIC OBSTRUCTIVE PULMONARY DISEASE
     Dosage: 800MCG (400 MCG, 2 IN 1 D), RESPIRATORY (INHALATION)
     Route: 055
     Dates: start: 201308
  2. DIGOXIN (DIGOXIN) (DIGOXIN) [Concomitant]
  3. SPIRONOLACTONE (SPIRONOLACTONE) (SPIRONOLACTONE) [Concomitant]
  4. CARVEDILOL (CARVEDILOL) (CARVEDILOL) [Concomitant]
  5. ISOSORBIDE (ISOSORBIDE) (ISOSORBIDE) [Concomitant]
  6. CLOPIDOGREL (CLOPIDOGREL) (CLOPIDOGREL) [Concomitant]
  7. OXYCODONE (OXYCODONE) (OXYCODONE) [Concomitant]
  8. METHADONE (METHADONE) (METHADONE) [Concomitant]

REACTIONS (2)
  - Pollakiuria [None]
  - Dysuria [None]
